FAERS Safety Report 14082416 (Version 2)
Quarter: 2018Q1

REPORT INFORMATION
  Report Type: Report from Study
  Country: CO (occurrence: CO)
  Receive Date: 20171013
  Receipt Date: 20180330
  Transmission Date: 20180508
  Serious: Yes (Hospitalization, Other)
  Sender: FDA-Public Use
  Company Number: CO-AMGEN-COLSL2017152710

PATIENT
  Age: 70 Year
  Sex: Female

DRUGS (2)
  1. ARANESP [Suspect]
     Active Substance: DARBEPOETIN ALFA
     Indication: NEPHROGENIC ANAEMIA
     Dosage: 80 MUG, Q2WK
     Route: 058
     Dates: start: 20170301
  2. ARANESP [Suspect]
     Active Substance: DARBEPOETIN ALFA
     Dosage: 150 MUG, Q2WK
     Route: 058

REACTIONS (1)
  - Urinary tract infection [Recovered/Resolved]

NARRATIVE: CASE EVENT DATE: 2017
